FAERS Safety Report 26216830 (Version 1)
Quarter: 2025Q4

REPORT INFORMATION
  Report Type: Spontaneous
  Country: EU (occurrence: None)
  Receive Date: 20251231
  Receipt Date: 20251231
  Transmission Date: 20260118
  Serious: Yes (Hospitalization)
  Sender: ORGANON
  Company Number: EU-GLAXOSMITHKLINE-FR2023172506

PATIENT
  Age: 72 Year
  Sex: Male
  Weight: 93 kg

DRUGS (3)
  1. DIPROSONE [Suspect]
     Active Substance: BETAMETHASONE DIPROPIONATE
     Indication: Non-small cell lung cancer
     Dosage: UNK
  2. BELRESTOTUG [Suspect]
     Active Substance: BELRESTOTUG
     Indication: Non-small cell lung cancer
     Dosage: 100 MG, SINGLE
     Dates: start: 20230704
  3. DOSTARLIMAB [Suspect]
     Active Substance: DOSTARLIMAB
     Indication: Non-small cell lung cancer
     Dosage: 500 MG, SINGLE
     Dates: start: 20230704

REACTIONS (2)
  - Immune-mediated adrenal insufficiency [Not Recovered/Not Resolved]
  - Product use in unapproved indication [Unknown]

NARRATIVE: CASE EVENT DATE: 20231208
